FAERS Safety Report 9432101 (Version 3)
Quarter: 2013Q3

REPORT INFORMATION
  Report Type: Spontaneous
  Country: US (occurrence: US)
  Receive Date: 20130731
  Receipt Date: 20130916
  Transmission Date: 20140515
  Serious: No
  Sender: FDA-Public Use
  Company Number: US-PFIZER INC-2013218744

PATIENT
  Age: 56 Year
  Sex: Female
  Weight: 68.03 kg

DRUGS (4)
  1. ADVIL PM [Suspect]
     Indication: SLEEP DISORDER
     Dosage: UNK, ONCE A DAY
  2. ADVIL [Suspect]
     Dosage: UNK, ONCE A DAY
  3. METOPROLOL [Concomitant]
     Indication: HYPERTENSION
     Dosage: 50 MG, UNK
  4. LIPITOR [Concomitant]
     Indication: BLOOD CHOLESTEROL INCREASED
     Dosage: 10 MG, UNK

REACTIONS (2)
  - Middle insomnia [Unknown]
  - Weight decreased [Unknown]
